FAERS Safety Report 17334984 (Version 1)
Quarter: 2020Q1

REPORT INFORMATION
  Report Type: Spontaneous
  Country: US (occurrence: US)
  Receive Date: 20200128
  Receipt Date: 20200128
  Transmission Date: 20200409
  Serious: Yes (Hospitalization)
  Sender: FDA-Public Use
  Company Number: US-AMGEN-USASP2020013340

PATIENT
  Age: 76 Year
  Sex: Female

DRUGS (1)
  1. EPOGEN [Suspect]
     Active Substance: ERYTHROPOIETIN
     Indication: NEPHROGENIC ANAEMIA
     Dosage: 8000 UNIT
     Route: 065
     Dates: start: 201904, end: 20200120

REACTIONS (3)
  - Decubitus ulcer [Unknown]
  - Pain of skin [Unknown]
  - Lethargy [Unknown]

NARRATIVE: CASE EVENT DATE: 2019
